APPROVED DRUG PRODUCT: LERITINE
Active Ingredient: ANILERIDINE PHOSPHATE
Strength: 25MG/ML
Dosage Form/Route: INJECTABLE;INJECTION
Application: N010520 | Product #003
Applicant: MERCK AND CO INC
Approved: Approved Prior to Jan 1, 1982 | RLD: No | RS: No | Type: DISCN